FAERS Safety Report 7059871-5 (Version None)
Quarter: 2010Q4

REPORT INFORMATION
  Report Type: 
  Country: None (occurrence: None)
  Receive Date: 20101025
  Receipt Date: 20101013
  Transmission Date: 20110411
  Serious: Yes (Other)
  Sender: FDA-Public Use
  Company Number: PHHY2010JP68714

PATIENT
  Sex: Female

DRUGS (5)
  1. SIMULECT [Suspect]
     Indication: LIVER TRANSPLANT
     Dosage: 20 MG
     Route: 042
  2. CYCLOSPORINE [Suspect]
     Indication: LIVER TRANSPLANT
  3. CELL CEPT [Concomitant]
     Indication: LIVER TRANSPLANT
  4. METHYLPREDNISOLONE [Concomitant]
     Indication: LIVER TRANSPLANT
  5. POLYGAM S/D [Concomitant]
     Indication: PLATELET COUNT DECREASED
     Dosage: 100 MG/KG
     Route: 042

REACTIONS (3)
  - HEPATITIS C [None]
  - PANCYTOPENIA [None]
  - PLATELET COUNT DECREASED [None]
